FAERS Safety Report 9543039 (Version 2)
Quarter: 2013Q4

REPORT INFORMATION
  Report Type: Spontaneous
  Country: AT (occurrence: AT)
  Receive Date: 20130923
  Receipt Date: 20131011
  Transmission Date: 20140711
  Serious: Yes (Death)
  Sender: FDA-Public Use
  Company Number: PHHY2013AT104771

PATIENT
  Age: 37 Year
  Sex: Male

DRUGS (5)
  1. VENLAFAXINE SANDOZ [Suspect]
     Dosage: 50 MG, QD
     Dates: start: 2012
  2. PRAXITEN [Suspect]
     Dates: start: 2012
  3. TRITTICO [Suspect]
     Dosage: 50 MG, DAILY
     Dates: start: 2012, end: 2012
  4. TRITTICO [Suspect]
     Dosage: 75 MG, BID
     Dates: start: 2012
  5. CIPRALEX [Concomitant]
     Dosage: UNK UKN, UNK
     Dates: start: 2012

REACTIONS (5)
  - Completed suicide [Fatal]
  - Depression [Not Recovered/Not Resolved]
  - Sleep disorder [Not Recovered/Not Resolved]
  - Dysphonia [Unknown]
  - Intentional drug misuse [Unknown]
